FAERS Safety Report 20972981 (Version 1)
Quarter: 2022Q2

REPORT INFORMATION
  Report Type: Other
  Country: TW (occurrence: None)
  Receive Date: 20220617
  Receipt Date: 20220617
  Transmission Date: 20220721
  Serious: Yes (Hospitalization)
  Sender: FDA-Public Use
  Company Number: TW-ROCHE-3113868

PATIENT
  Age: 60 Year
  Sex: Female

DRUGS (1)
  1. AVASTIN [Suspect]
     Active Substance: BEVACIZUMAB
     Indication: Ovarian cancer
     Route: 042

REACTIONS (2)
  - Ileus [Unknown]
  - Hydronephrosis [Unknown]

NARRATIVE: CASE EVENT DATE: 20220429
